FAERS Safety Report 4864100-4 (Version None)
Quarter: 2005Q4

REPORT INFORMATION
  Report Type: 
  Country: None (occurrence: None)
  Receive Date: 20051222
  Receipt Date: 20051220
  Transmission Date: 20060501
  Serious: Yes (Other)
  Sender: FDA-Public Use
  Company Number: US-GLAXOSMITHKLINE-A0586453A

PATIENT
  Age: 96 Year
  Sex: Female

DRUGS (4)
  1. COREG [Suspect]
     Indication: CARDIAC FAILURE CONGESTIVE
     Dosage: 6.25MG THREE TIMES PER DAY
     Route: 048
     Dates: start: 20051101
  2. LOTREL [Concomitant]
  3. ALBUTEROL [Concomitant]
  4. OXYGEN [Concomitant]

REACTIONS (4)
  - ANOREXIA [None]
  - FATIGUE [None]
  - HEPATIC ENZYME INCREASED [None]
  - WEIGHT DECREASED [None]
